FAERS Safety Report 10206886 (Version 1)
Quarter: 2014Q2

REPORT INFORMATION
  Report Type: Spontaneous
  Country: US (occurrence: None)
  Receive Date: 20140528
  Receipt Date: 20140528
  Transmission Date: 20141212
  Serious: No
  Sender: FDA-Public Use
  Company Number: None

PATIENT
  Age: 15 Year
  Sex: Female

DRUGS (1)
  1. EPIDUO [Suspect]

REACTIONS (3)
  - Pruritus [None]
  - Chemical burn of skin [None]
  - Drug ineffective [None]
